FAERS Safety Report 9169241 (Version 1)
Quarter: 2013Q1

REPORT INFORMATION
  Report Type: Spontaneous
  Country: FR (occurrence: FR)
  Receive Date: 20130318
  Receipt Date: 20130318
  Transmission Date: 20140127
  Serious: Yes (Other)
  Sender: FDA-Public Use
  Company Number: FR-ROCHE-619596

PATIENT
  Age: 88 Year
  Sex: Male

DRUGS (8)
  1. ROCEPHINE [Suspect]
     Indication: LUNG DISORDER
     Route: 042
     Dates: start: 20090110, end: 20090123
  2. FLUINDIONE [Suspect]
     Indication: ATRIAL FIBRILLATION
     Route: 048
  3. FLUINDIONE [Suspect]
     Route: 048
  4. OMEPRAZOLE [Concomitant]
     Route: 065
  5. LASILIX [Concomitant]
     Route: 065
  6. CORDARONE [Concomitant]
     Route: 065
  7. NOVONORM [Concomitant]
     Route: 065
  8. DICLOFENAC [Concomitant]
     Route: 065

REACTIONS (1)
  - International normalised ratio increased [Recovered/Resolved]
